FAERS Safety Report 24984847 (Version 1)
Quarter: 2025Q1

REPORT INFORMATION
  Report Type: Spontaneous
  Country: JP (occurrence: JP)
  Receive Date: 20250219
  Receipt Date: 20250219
  Transmission Date: 20250409
  Serious: Yes (Hospitalization, Other)
  Sender: ALEXION PHARMACEUTICALS
  Company Number: JP-ASTRAZENECA-250014883_013120_P_1

PATIENT
  Age: 7 Decade

DRUGS (4)
  1. DURVALUMAB [Suspect]
     Active Substance: DURVALUMAB
     Indication: Bile duct cancer
  2. DURVALUMAB [Suspect]
     Active Substance: DURVALUMAB
  3. CISPLATIN [Concomitant]
     Active Substance: CISPLATIN
     Indication: Bile duct cancer
     Route: 065
  4. GEMCITABINE [Concomitant]
     Active Substance: GEMCITABINE
     Indication: Bile duct cancer
     Route: 065

REACTIONS (4)
  - Pyrexia [Unknown]
  - Movement disorder [Unknown]
  - Gait disturbance [Unknown]
  - Metastases to central nervous system [Unknown]
